FAERS Safety Report 20532973 (Version 1)
Quarter: 2022Q1

REPORT INFORMATION
  Report Type: Spontaneous
  Country: NL (occurrence: None)
  Receive Date: 20220301
  Receipt Date: 20220301
  Transmission Date: 20220423
  Serious: Yes (Hospitalization)
  Sender: FDA-Public Use
  Company Number: 2022A081059

PATIENT
  Age: 78 Year
  Sex: Female

DRUGS (2)
  1. FULVESTRANT [Suspect]
     Active Substance: FULVESTRANT
     Dosage: 500 MG500.0MG UNKNOWN
     Route: 065
  2. PALBOCICLIB [Suspect]
     Active Substance: PALBOCICLIB
     Dosage: 125 MG125.0MG UNKNOWN
     Route: 065
     Dates: start: 20181114, end: 20191231

REACTIONS (2)
  - Vomiting [Unknown]
  - Urine output decreased [Unknown]

NARRATIVE: CASE EVENT DATE: 20190107
